FAERS Safety Report 12204956 (Version 2)
Quarter: 2016Q1

REPORT INFORMATION
  Report Type: Spontaneous
  Country: US (occurrence: US)
  Receive Date: 20160323
  Receipt Date: 20160330
  Transmission Date: 20160526
  Serious: Yes (Other)
  Sender: FDA-Public Use
  Company Number: US-UCBSA-2016009916

PATIENT
  Age: 59 Year
  Sex: Female

DRUGS (7)
  1. KEFLEX [Concomitant]
     Active Substance: CEPHALEXIN
     Indication: PRODUCT USED FOR UNKNOWN INDICATION
     Dosage: UNK
     Dates: start: 2016
  2. KETOCONAZOLE. [Concomitant]
     Active Substance: KETOCONAZOLE
     Indication: ACNE
     Dosage: UNK, 2X/DAY (BID), 2% CREAM
     Route: 061
     Dates: start: 20160107
  3. CIMZIA [Suspect]
     Active Substance: CERTOLIZUMAB PEGOL
     Dosage: 200 MG, EV 2 WEEKS(QOW)
     Route: 058
     Dates: start: 20160316
  4. CIMZIA [Suspect]
     Active Substance: CERTOLIZUMAB PEGOL
     Indication: RHEUMATOID ARTHRITIS
     Dosage: 200 MG, EV 2 WEEKS(QOW)
     Route: 058
     Dates: start: 20151028, end: 2016
  5. DESONIDE. [Concomitant]
     Active Substance: DESONIDE
     Indication: ACNE
     Dosage: 0.5 MG CREAM, TWICE A DAY, AS NEEDED (PRN)
     Dates: start: 20160107
  6. SYNTHROID [Concomitant]
     Active Substance: LEVOTHYROXINE SODIUM
     Indication: THYROID ADENOMA
     Dosage: 0.25 MG, ONCE DAILY (QD)
     Route: 048
  7. FOLIC ACID. [Concomitant]
     Active Substance: FOLIC ACID
     Indication: ALOPECIA
     Dosage: 1 MG, ONCE DAILY (QD)
     Route: 048

REACTIONS (8)
  - Nasopharyngitis [Recovered/Resolved]
  - Squamous cell carcinoma [Unknown]
  - Eczema [Not Recovered/Not Resolved]
  - Bronchitis [Recovering/Resolving]
  - Incorrect dose administered [Unknown]
  - Alopecia [Unknown]
  - Visual acuity reduced [Not Recovered/Not Resolved]
  - Rash macular [Not Recovered/Not Resolved]

NARRATIVE: CASE EVENT DATE: 2015
